FAERS Safety Report 22158644 (Version 3)
Quarter: 2023Q2

REPORT INFORMATION
  Report Type: Report from Study
  Country: PT (occurrence: PT)
  Receive Date: 20230331
  Receipt Date: 20230607
  Transmission Date: 20230722
  Serious: Yes (Other)
  Sender: FDA-Public Use
  Company Number: PT-ABBVIE-4337784

PATIENT
  Age: 43 Year
  Sex: Female

DRUGS (1)
  1. HUMIRA [Suspect]
     Active Substance: ADALIMUMAB
     Indication: Ankylosing spondylitis
     Dosage: STRENGTH 40 MG
     Route: 058
     Dates: start: 20230127, end: 202302

REACTIONS (1)
  - Brain neoplasm benign [Not Recovered/Not Resolved]

NARRATIVE: CASE EVENT DATE: 20230301
